FAERS Safety Report 22219783 (Version 2)
Quarter: 2023Q2

REPORT INFORMATION
  Report Type: Spontaneous
  Country: GB (occurrence: None)
  Receive Date: 20230417
  Receipt Date: 20230515
  Transmission Date: 20230722
  Serious: Yes (Death, Other)
  Sender: FDA-Public Use
  Company Number: 2023A088286

PATIENT
  Age: 81 Year
  Sex: Female
  Weight: 95 kg

DRUGS (14)
  1. OMEPRAZOLE [Suspect]
     Active Substance: OMEPRAZOLE
     Dates: start: 2014
  2. METATONE [Concomitant]
     Dates: start: 2012
  3. INSULIN ASPART [Concomitant]
     Active Substance: INSULIN ASPART
     Dates: start: 2012
  4. DOXAZOSIN [Concomitant]
     Active Substance: DOXAZOSIN MESYLATE
     Dates: start: 2014
  5. METFORMIN [Concomitant]
     Active Substance: METFORMIN HYDROCHLORIDE
  6. FUROSEMIDE [Concomitant]
     Active Substance: FUROSEMIDE
  7. SIMVASTATIN [Concomitant]
     Active Substance: SIMVASTATIN
  8. LOPERAMIDE [Concomitant]
     Active Substance: LOPERAMIDE
  9. LISINOPRIL [Concomitant]
     Active Substance: LISINOPRIL
     Indication: Hypertension
     Dosage: INTERMITTENTLY AS SHE THOUGHT IT WAS JUST FOR WHEN SHE HAD LEG SWELLING
     Route: 048
     Dates: start: 20221222, end: 20230223
  10. HYDROCORTISONE [Concomitant]
     Active Substance: HYDROCORTISONE
  11. EPINEPHRINE [Concomitant]
     Active Substance: EPINEPHRINE
     Route: 030
  12. DEXAMETHASONE [Concomitant]
     Active Substance: DEXAMETHASONE
  13. PIPERACILLIN SODIUM\TAZOBACTAM SODIUM [Concomitant]
     Active Substance: PIPERACILLIN SODIUM\TAZOBACTAM SODIUM
  14. CHLORPHERAMINE [Concomitant]

REACTIONS (1)
  - Hyponatraemia [Fatal]

NARRATIVE: CASE EVENT DATE: 20230226
